FAERS Safety Report 6303922-X (Version None)
Quarter: 2009Q3

REPORT INFORMATION
  Report Type: 
  Country: None (occurrence: None)
  Receive Date: 20090810
  Receipt Date: 20090810
  Transmission Date: 20100115
  Serious: Yes (Disabling, Other)
  Sender: FDA-Public Use
  Company Number: None

PATIENT
  Sex: Female
  Weight: 54.4316 kg

DRUGS (3)
  1. HALDOL [Suspect]
     Dosage: 1 ML, 2X DAY
     Dates: start: 20011001, end: 20011201
  2. COGENTIN [Suspect]
     Dates: start: 20011001, end: 20011201
  3. RISPERDAL [Suspect]
     Dates: start: 20011001, end: 20011201

REACTIONS (2)
  - TREMOR [None]
  - VISION BLURRED [None]
